FAERS Safety Report 13782197 (Version 1)
Quarter: 2017Q3

REPORT INFORMATION
  Report Type: Spontaneous
  Country: US (occurrence: US)
  Receive Date: 20170724
  Receipt Date: 20170724
  Transmission Date: 20171127
  Serious: Yes (Other)
  Sender: FDA-Public Use
  Company Number: None

PATIENT
  Age: 55 Year
  Sex: Female
  Weight: 78.75 kg

DRUGS (3)
  1. LEVOTHYROXINE. [Concomitant]
     Active Substance: LEVOTHYROXINE
  2. ONE A DAY VITAMIN WOMEN OVER 50 [Concomitant]
  3. LORAZAPAM .5 MGS [Suspect]
     Active Substance: LORAZEPAM
     Indication: ANXIETY
     Route: 048

REACTIONS (10)
  - Dependence [None]
  - Frustration tolerance decreased [None]
  - Paraesthesia [None]
  - Anger [None]
  - Depressed mood [None]
  - Withdrawal syndrome [None]
  - Drug ineffective [None]
  - Discomfort [None]
  - Brain injury [None]
  - Anxiety [None]

NARRATIVE: CASE EVENT DATE: 20130716
